FAERS Safety Report 5829758-1 (Version None)
Quarter: 2008Q3

REPORT INFORMATION
  Report Type: 
  Country: None (occurrence: None)
  Receive Date: 20080801
  Receipt Date: 20080220
  Transmission Date: 20090109
  Serious: No
  Sender: FDA-Public Use
  Company Number: US-BAYER-200810865BCC

PATIENT
  Age: 59 Year
  Sex: Female
  Weight: 66 kg

DRUGS (4)
  1. ALEVE D [Suspect]
     Indication: NASOPHARYNGITIS
     Route: 048
     Dates: start: 20080217, end: 20080221
  2. SPIRIVA [Concomitant]
  3. ADVAIR DISKUS 100/50 [Concomitant]
  4. BUSPIRONE HCL [Concomitant]

REACTIONS (3)
  - DYSPHONIA [None]
  - HEADACHE [None]
  - SINUS HEADACHE [None]
